FAERS Safety Report 15991070 (Version 2)
Quarter: 2019Q3

REPORT INFORMATION
  Report Type: Other
  Country: CA (occurrence: CA)
  Receive Date: 20190221
  Receipt Date: 20190820
  Transmission Date: 20191004
  Serious: Yes (Hospitalization)
  Sender: FDA-Public Use
  Company Number: CA-PFIZER INC-2019070429

PATIENT
  Age: 4 Year
  Sex: Female

DRUGS (6)
  1. UROMITEXAN [Suspect]
     Active Substance: MESNA
     Indication: NEPHROBLASTOMA
     Dosage: 360 MG/M2, CYCLIC (OVER 2 HOURS DAILY)
     Route: 065
  2. MEROPENEM. [Concomitant]
     Active Substance: MEROPENEM
     Dosage: UNK
  3. VANCOMYCIN [Concomitant]
     Active Substance: VANCOMYCIN
     Dosage: UNK
  4. ETOPOSIDE. [Suspect]
     Active Substance: ETOPOSIDE
     Indication: NEPHROBLASTOMA
     Dosage: UNK
     Route: 065
  5. IFEX [Suspect]
     Active Substance: IFOSFAMIDE
     Indication: NEPHROBLASTOMA
     Dosage: 1800 MG/M2, CYCLIC
     Route: 065
  6. CARBOPLATIN. [Suspect]
     Active Substance: CARBOPLATIN
     Indication: NEPHROBLASTOMA
     Dosage: UNK
     Route: 065

REACTIONS (1)
  - Nephropathy toxic [Recovered/Resolved]
